FAERS Safety Report 4588264-5 (Version None)
Quarter: 2005Q1

REPORT INFORMATION
  Report Type: 
  Country: None (occurrence: None)
  Receive Date: 20050216
  Receipt Date: 20050204
  Transmission Date: 20050727
  Serious: Yes (Hospitalization)
  Sender: FDA-Public Use
  Company Number: 2005GB00245

PATIENT
  Age: 64 Year
  Sex: Female
  Weight: 59.2 kg

DRUGS (11)
  1. ARIMIDEX [Suspect]
     Indication: BREAST CANCER
     Dosage: 1 MG QD PO
     Route: 048
     Dates: start: 19980723
  2. NOLVADEX [Suspect]
     Indication: BREAST CANCER
     Dosage: 20 MG QD PO
     Route: 048
     Dates: start: 19980723
  3. PREDNISOLONE [Concomitant]
  4. PARACETAMOL [Concomitant]
  5. IBUPROFEN [Concomitant]
  6. LACTULOSE [Concomitant]
  7. AUGMENTIN '125' [Concomitant]
  8. VOLTAROL [Concomitant]
  9. TRAMADOL HCL [Concomitant]
  10. MORPHINE [Concomitant]
  11. CYCLIZINE [Concomitant]

REACTIONS (2)
  - ANORECTAL DISORDER [None]
  - UTERINE POLYP [None]
